FAERS Safety Report 7263200-1 (Version None)
Quarter: 2011Q1

REPORT INFORMATION
  Report Type: 
  Country: None (occurrence: None)
  Receive Date: 20110130
  Receipt Date: 20101011
  Transmission Date: 20110831
  Serious: No
  Sender: FDA-Public Use
  Company Number: US-ABBOTT-10P-163-0677978-00

PATIENT
  Sex: Female

DRUGS (3)
  1. HUMIRA [Suspect]
     Indication: JUVENILE ARTHRITIS
     Dates: start: 20050101, end: 20050101
  2. HUMIRA [Suspect]
     Indication: JUVENILE ARTHRITIS
     Dates: start: 20100301
  3. VALTREX [Concomitant]
     Indication: HERPES SIMPLEX
     Dosage: FOR BREAKOUTS

REACTIONS (2)
  - INJECTION SITE PAIN [None]
  - FUNGAL INFECTION [None]
